FAERS Safety Report 21445395 (Version 5)
Quarter: 2022Q4

REPORT INFORMATION
  Report Type: Spontaneous
  Country: US (occurrence: US)
  Receive Date: 20221012
  Receipt Date: 20221108
  Transmission Date: 20230113
  Serious: No
  Sender: FDA-Public Use
  Company Number: US-PFIZER INC-PV202200064994

PATIENT
  Age: 17 Year
  Sex: Male
  Weight: 99.79 kg

DRUGS (1)
  1. GENOTROPIN [Suspect]
     Active Substance: SOMATROPIN
     Indication: Blood growth hormone
     Dosage: 1 MG (INJECT 1 MG SUBCUTANEOUS SIMULTANEOUSLY BEFORE SLEEP)
     Route: 058

REACTIONS (2)
  - Device use issue [Unknown]
  - Drug dose omission by device [Unknown]
